FAERS Safety Report 6637356-5 (Version None)
Quarter: 2010Q1

REPORT INFORMATION
  Report Type: 
  Country: None (occurrence: None)
  Receive Date: 20100311
  Receipt Date: 20100303
  Transmission Date: 20100710
  Serious: Yes (Hospitalization)
  Sender: FDA-Public Use
  Company Number: 2010SP013117

PATIENT
  Age: 60 Year
  Sex: Female

DRUGS (4)
  1. REMERON [Suspect]
     Indication: DEPRESSION
     Dosage: 45 MG;QD;PO
     Route: 048
  2. VALPROATE SODIUM [Suspect]
     Indication: EPILEPSY
     Dosage: 300 MG; PO
     Route: 048
  3. LAMICTAL [Suspect]
     Indication: EPILEPSY
     Dosage: 100 MG; BID; PO
     Route: 048
  4. TRAZODONE HCL [Suspect]
     Indication: DEPRESSION
     Dosage: 50 MG;QD;PO
     Route: 048

REACTIONS (4)
  - DEMENTIA [None]
  - ENCEPHALOPATHY [None]
  - FALL [None]
  - TOXIC ENCEPHALOPATHY [None]
